FAERS Safety Report 8589148-8 (Version None)
Quarter: 2012Q3

REPORT INFORMATION
  Report Type: 
  Country: None (occurrence: None)
  Receive Date: 20120813
  Receipt Date: 20120811
  Transmission Date: 20120928
  Serious: No
  Sender: FDA-Public Use
  Company Number: US-PFIZER INC-2012196014

PATIENT
  Age: 77 Year
  Sex: Male
  Weight: 99 kg

DRUGS (2)
  1. ADVIL [Suspect]
     Indication: BACK DISORDER
     Dosage: UNK, DAILY
     Dates: start: 20120101, end: 20120701
  2. NEOSPORIN [Suspect]
     Indication: RASH
     Dosage: UNK, ONCE
     Dates: start: 20120701

REACTIONS (2)
  - DRUG INEFFECTIVE [None]
  - RASH [None]
